FAERS Safety Report 8933460 (Version 1)
Quarter: 2012Q4

REPORT INFORMATION
  Report Type: 
  Country: US (occurrence: US)
  Receive Date: 20121128
  Receipt Date: 20121128
  Transmission Date: 20130627
  Serious: No
  Sender: FDA-Public Use
  Company Number: US-ASTRAZENECA-2012SE86812

PATIENT
  Age: 51 Year
  Sex: Female
  Weight: 99.3 kg

DRUGS (7)
  1. OMEPRAZOLE [Suspect]
     Indication: GASTROOESOPHAGEAL REFLUX DISEASE
     Route: 048
     Dates: start: 1992
  2. SEROQUEL [Concomitant]
  3. METFORMIN [Concomitant]
  4. LANTUS INSULIN [Concomitant]
  5. FOSINOPRIL [Concomitant]
  6. LIPITOR [Concomitant]
  7. LEXAPRO [Concomitant]

REACTIONS (2)
  - Diabetes mellitus [Not Recovered/Not Resolved]
  - Drug ineffective [Not Recovered/Not Resolved]
